FAERS Safety Report 9228515 (Version 2)
Quarter: 2014Q2

REPORT INFORMATION
  Report Type: Spontaneous
  Country: IT (occurrence: IT)
  Receive Date: 20130412
  Receipt Date: 20140529
  Transmission Date: 20141212
  Serious: Yes (Hospitalization)
  Sender: FDA-Public Use
  Company Number: IT-GLAXOSMITHKLINE-B0882163A

PATIENT
  Age: 30 Year
  Sex: Female

DRUGS (2)
  1. REVOLADE [Suspect]
     Indication: IMMUNE THROMBOCYTOPENIC PURPURA
     Dosage: 50MG PER DAY
     Dates: start: 20130214, end: 20130221
  2. MINULET [Suspect]
     Indication: ORAL CONTRACEPTION
     Dosage: 1TAB PER DAY
     Route: 048
     Dates: start: 20120821, end: 20130221

REACTIONS (2)
  - Pulmonary embolism [Unknown]
  - Pulmonary infarction [Unknown]
